FAERS Safety Report 9862355 (Version 2)
Quarter: 2014Q1

REPORT INFORMATION
  Report Type: Other
  Country: FR (occurrence: FR)
  Receive Date: 20140203
  Receipt Date: 20140211
  Transmission Date: 20141002
  Serious: Yes (Other)
  Sender: FDA-Public Use
  Company Number: FR-MPIJNJ-2014JNJ000206

PATIENT
  Sex: 0

DRUGS (3)
  1. VELCADE [Suspect]
     Indication: AMYLOIDOSIS
     Dosage: 2 MG, UNK
     Route: 058
     Dates: start: 20130523, end: 201311
  2. ALKERAN [Suspect]
     Indication: PRODUCT USED FOR UNKNOWN INDICATION
     Dosage: 2 MG, UNK
     Route: 065
     Dates: start: 20130617, end: 201311
  3. CORTANCYL [Concomitant]
     Indication: PRODUCT USED FOR UNKNOWN INDICATION
     Dosage: 20 MG, UNK
     Route: 065
     Dates: start: 20130617, end: 201311

REACTIONS (3)
  - Meningioma [Unknown]
  - Amnestic disorder [Recovered/Resolved]
  - Off label use [Unknown]
